FAERS Safety Report 5900271-6 (Version None)
Quarter: 2008Q3

REPORT INFORMATION
  Report Type: 
  Country: None (occurrence: None)
  Receive Date: 20080926
  Receipt Date: 20080917
  Transmission Date: 20090109
  Serious: Yes (Hospitalization, Other)
  Sender: FDA-Public Use
  Company Number: PHHY2008BR22037

PATIENT
  Age: 25 Year
  Sex: Male
  Weight: 78 kg

DRUGS (5)
  1. DICLOFENAC POTASSIUM [Suspect]
     Indication: HAEMORRHOIDS
     Dosage: UNK, EVERY 8 HOURS
     Route: 048
     Dates: start: 20080801
  2. NUPERCAINAL (NCH) [Suspect]
     Dosage: UNK
     Route: 061
  3. NUPERCAINAL (NCH) [Suspect]
     Dosage: 5 TO 6 TIMES DAILY
     Route: 061
  4. DIPIRONA [Suspect]
     Indication: HAEMORRHOIDS
     Dosage: UNK
     Route: 048
  5. POMADE JELLY [Suspect]

REACTIONS (8)
  - CONDITION AGGRAVATED [None]
  - HAEMOGLOBIN DECREASED [None]
  - HAEMORRHAGE [None]
  - HAEMORRHOID OPERATION [None]
  - HAEMORRHOIDAL HAEMORRHAGE [None]
  - HYPERSENSITIVITY [None]
  - PRURITUS [None]
  - WEIGHT DECREASED [None]
